FAERS Safety Report 9310409 (Version 1)
Quarter: 2013Q2

REPORT INFORMATION
  Report Type: Spontaneous
  Country: US (occurrence: US)
  Receive Date: 20130527
  Receipt Date: 20130527
  Transmission Date: 20140414
  Serious: No
  Sender: FDA-Public Use
  Company Number: US-PFIZER INC-2013159871

PATIENT
  Age: 49 Year
  Sex: Female

DRUGS (4)
  1. NEURONTIN [Suspect]
     Dosage: 300 MG, 3X/DAY (1C PO TID)
     Route: 048
  2. MORPHINE SULFATE [Suspect]
     Dosage: UNK
  3. SAPHRIS [Suspect]
     Dosage: UNK
  4. CYMBALTA [Suspect]
     Dosage: UNK

REACTIONS (1)
  - Drug hypersensitivity [Unknown]
